FAERS Safety Report 4470986-8 (Version None)
Quarter: 2004Q4

REPORT INFORMATION
  Report Type: 
  Country: None (occurrence: None)
  Receive Date: 20041011
  Receipt Date: 20030409
  Transmission Date: 20050328
  Serious: Yes (Other)
  Sender: FDA-Public Use
  Company Number: US-BRISTOL-MYERS SQUIBB COMPANY-12245361

PATIENT
  Age: 29 Year
  Sex: Female

DRUGS (1)
  1. STADOL [Suspect]
     Dates: start: 19960108, end: 19970615

REACTIONS (7)
  - ABORTION SPONTANEOUS [None]
  - DEPENDENCE [None]
  - DYSPNOEA [None]
  - HYPERSENSITIVITY [None]
  - PREGNANCY [None]
  - SYNCOPE [None]
  - VOMITING [None]
